FAERS Safety Report 7481902-9 (Version None)
Quarter: 2011Q2

REPORT INFORMATION
  Report Type: 
  Country: None (occurrence: None)
  Receive Date: 20110516
  Receipt Date: 20101229
  Transmission Date: 20111010
  Serious: Yes (Hospitalization)
  Sender: FDA-Public Use
  Company Number: US-BAYER-201026859NA

PATIENT
  Age: 43 Year
  Sex: Female
  Weight: 78.636 kg

DRUGS (15)
  1. MUPIROCIN [Concomitant]
     Dates: start: 20090201
  2. DIFLUCAN [Concomitant]
  3. IBUPROFEN [Concomitant]
     Dates: start: 20080801
  4. YASMIN [Suspect]
     Indication: CONTRACEPTION
     Route: 048
     Dates: start: 20031001, end: 20060601
  5. WELLBUTRIN XL [Concomitant]
     Indication: DEPRESSION
     Dates: start: 20070912
  6. THYROID TAB [Concomitant]
     Dosage: 1 GR / 65 MG
     Dates: start: 20070501, end: 20070701
  7. YASMIN [Suspect]
     Route: 048
     Dates: start: 20070801, end: 20071001
  8. ZYRTEC [Concomitant]
     Indication: SEASONAL ALLERGY
     Dates: start: 20030101
  9. ALLEGRA-D [FEXOFENADINE HYDROCHLORIDE,PSEUDOEPHEDRINE HYDROCHLORIDE] [Concomitant]
     Dates: start: 20080101
  10. MUPIROCIN [Concomitant]
     Dates: start: 20030701
  11. CALCIUM [Concomitant]
  12. SEASONALE [Concomitant]
     Dosage: UNK
     Dates: start: 20070101
  13. ASPIRIN [Concomitant]
     Indication: PAIN IN EXTREMITY
  14. FLUCONAZOLE [Concomitant]
     Dates: start: 20030101
  15. FLUCONAZOLE [Concomitant]
     Dosage: UNK
     Dates: start: 20040601

REACTIONS (2)
  - DEEP VEIN THROMBOSIS [None]
  - PAIN IN EXTREMITY [None]
